FAERS Safety Report 4509738-9 (Version None)
Quarter: 2004Q4

REPORT INFORMATION
  Report Type: 
  Country: None (occurrence: None)
  Receive Date: 20041119
  Receipt Date: 20041103
  Transmission Date: 20050328
  Serious: Yes (Other)
  Sender: FDA-Public Use
  Company Number: USA021022522

PATIENT
  Age: 55 Year
  Sex: Male
  Weight: 73 kg

DRUGS (9)
  1. HUMULIN R [Suspect]
     Indication: DIABETES MELLITUS
     Dosage: 10 U DAY
  2. HUMALOG [Suspect]
     Indication: DIABETES MELLITUS
     Dates: start: 20010101
  3. HUMULIN L [Suspect]
     Indication: DIABETES MELLITUS
     Dosage: 36 U DAY
     Dates: start: 20010101
  4. LENTE ILETIN (BEEF-PORK) INSULIN ZINC [Suspect]
     Indication: DIABETES MELLITUS
     Dates: start: 19560101, end: 20010101
  5. NPH ILETIN I (BEEF-PORK) [Suspect]
  6. ILETIN-BEEF/PORK REGULAR INSULIN (INSULIN, ANIMAL) [Suspect]
  7. LANTUS [Concomitant]
  8. NOVOLOG [Concomitant]
  9. PROTONIX [Concomitant]

REACTIONS (8)
  - CATARACT OPERATION [None]
  - DIABETES MELLITUS INADEQUATE CONTROL [None]
  - DRUG INEFFECTIVE [None]
  - FEELING ABNORMAL [None]
  - GLAUCOMA [None]
  - LOWER LIMB FRACTURE [None]
  - MYOPIA [None]
  - RETINAL DETACHMENT [None]
